FAERS Safety Report 18916359 (Version 3)
Quarter: 2021Q2

REPORT INFORMATION
  Report Type: Spontaneous
  Country: FR (occurrence: FR)
  Receive Date: 20210219
  Receipt Date: 20210527
  Transmission Date: 20210717
  Serious: Yes (Death, Other)
  Sender: FDA-Public Use
  Company Number: FR-PFIZER INC-2021159139

PATIENT
  Age: 75 Year
  Sex: Male
  Weight: 48 kg

DRUGS (11)
  1. EUPANTOL [Suspect]
     Active Substance: PANTOPRAZOLE SODIUM
     Dosage: 20 MILLIGRAM, QD (1DF, QD)
     Route: 048
  2. LASILIX [FUROSEMIDE] [Suspect]
     Active Substance: FUROSEMIDE
     Dosage: 20 MILLIGRAM, QD (1 DF, QD)
     Route: 048
  3. IMOVANE [Suspect]
     Active Substance: ZOPICLONE
     Dosage: 7.5 MILLIGRAM, QD (1 DF, QD)
     Route: 048
  4. KEPPRA [Suspect]
     Active Substance: LEVETIRACETAM
     Dosage: 1000 MILLIGRAM, QD (2 DF, QD)
     Route: 048
  5. METFORMINE [METFORMIN HYDROCHLORIDE] [Suspect]
     Active Substance: METFORMIN HYDROCHLORIDE
     Dosage: 3 DF, 1X/DAY
     Route: 048
  6. KARDEGIC [Suspect]
     Active Substance: ASPIRIN DL-LYSINE
     Dosage: 160 MILLIGRAM, QD (1 DF, QD)
     Route: 048
  7. TAHOR [Suspect]
     Active Substance: ATORVASTATIN CALCIUM
     Dosage: 20 MILLIGRAM, QD (1 DF, QD)
     Route: 048
  8. SERESTA [Suspect]
     Active Substance: OXAZEPAM
     Dosage: 30 MILLIGRAM, QD (3 DF, QD)
     Route: 048
  9. COMIRNATY [Suspect]
     Active Substance: TOZINAMERAN
     Indication: COVID-19 IMMUNISATION
     Dosage: 1ST DOSE, SINGLE DOSE
     Route: 030
     Dates: start: 20210119, end: 20210119
  10. DIFFU K [Suspect]
     Active Substance: POTASSIUM CHLORIDE
     Dosage: 3 DF, 1X/DAY
     Route: 048
  11. TIAPRIDAL [Suspect]
     Active Substance: TIAPRIDE HYDROCHLORIDE
     Dosage: 145 MILLIGRAM, QD
     Route: 048

REACTIONS (1)
  - Death [Fatal]

NARRATIVE: CASE EVENT DATE: 20210124
